FAERS Safety Report 8954927 (Version 1)
Quarter: 2012Q4

REPORT INFORMATION
  Report Type: Spontaneous
  Country: DE (occurrence: None)
  Receive Date: 20121129
  Receipt Date: 20121129
  Transmission Date: 20130627
  Serious: Yes (Other)
  Sender: FDA-Public Use
  Company Number: INT_00158_2012

PATIENT
  Age: 21 Year
  Sex: Male

DRUGS (1)
  1. MEROPENEM (MEROPENEM) 6 G [Suspect]
     Indication: PANCREATITIS NECROTISING
     Dosage: (not otherwise specified)
     Route: 042
     Dates: start: 20120922, end: 20120930

REACTIONS (1)
  - Blood creatine phosphokinase increased [None]
